FAERS Safety Report 6451798-2 (Version None)
Quarter: 2009Q4

REPORT INFORMATION
  Report Type: 
  Country: None (occurrence: None)
  Receive Date: 20091123
  Receipt Date: 20091109
  Transmission Date: 20100525
  Serious: Yes (Other)
  Sender: FDA-Public Use
  Company Number: ES-MYLANLABS-2009S1019383

PATIENT
  Age: 5 Decade
  Sex: Female

DRUGS (10)
  1. ALPRAZOLAM [Suspect]
     Dosage: MAXIMUM DOSAGE OF 8 MG/DAY
  2. CLONAZEPAM [Suspect]
  3. PARACETAMOL [Suspect]
     Indication: HEADACHE
     Dosage: UP TO 2500 MG/DAY
  4. IBUPROFEN [Suspect]
     Indication: HEADACHE
     Dosage: UP TO 600 MG/DAY BUT WAS TAKING OCCASIONALLY AT CURRENT PRESENTATION
  5. CLORAZEPATE DIPOTASSIUM [Suspect]
     Dosage: UP TO 40 MG/DAY AT TIME OF CURRENT PRESENTATION
  6. CLOMIPRAMINE [Concomitant]
  7. PAROXETINE [Concomitant]
  8. DULOXETINE HYDROCHLORIDE [Concomitant]
  9. PREGABALIN [Concomitant]
  10. LITHIUM [Concomitant]
     Indication: BIPOLAR II DISORDER

REACTIONS (1)
  - DRUG ABUSE [None]
